FAERS Safety Report 13943675 (Version 1)
Quarter: 2017Q3

REPORT INFORMATION
  Report Type: Spontaneous
  Country: US (occurrence: US)
  Receive Date: 20170907
  Receipt Date: 20170907
  Transmission Date: 20171128
  Serious: No
  Sender: FDA-Public Use
  Company Number: US-ROCHE-1484173

PATIENT
  Sex: Male

DRUGS (1)
  1. RITUXAN [Suspect]
     Active Substance: RITUXIMAB
     Indication: CHRONIC LYMPHOCYTIC LEUKAEMIA
     Dosage: MONTHLY, ONE DAY CYCLE, 4 PILLS
     Route: 042

REACTIONS (3)
  - Nasopharyngitis [Unknown]
  - Malaise [Unknown]
  - Fatigue [Unknown]
